FAERS Safety Report 4950743-6 (Version None)
Quarter: 2006Q1

REPORT INFORMATION
  Report Type: 
  Country: None (occurrence: None)
  Receive Date: 20060322
  Receipt Date: 20060207
  Transmission Date: 20060701
  Serious: Yes (Hospitalization)
  Sender: FDA-Public Use
  Company Number: US-ROCHE-435703

PATIENT
  Age: 31 Year
  Sex: Female
  Weight: 49 kg

DRUGS (15)
  1. SAQUINAVIR [Suspect]
     Route: 048
     Dates: start: 20030723, end: 20060112
  2. SAQUINAVIR [Suspect]
     Route: 048
     Dates: start: 20060112
  3. BLINDED UK-427,857 [Suspect]
     Route: 048
     Dates: start: 20051220
  4. RITONAVIR [Suspect]
     Route: 048
     Dates: start: 20030723
  5. FOSAMPRENAVIR [Suspect]
     Route: 048
     Dates: start: 20051220
  6. FLUCONAZOLE [Concomitant]
     Route: 048
     Dates: start: 19971219
  7. BACTRIM [Concomitant]
     Route: 048
     Dates: start: 19971219
  8. ITRACONAZOLE [Concomitant]
     Route: 048
     Dates: start: 19971219
  9. AMITRIPTYLINE HCL [Concomitant]
     Route: 048
     Dates: start: 20041015
  10. ALEVE [Concomitant]
     Route: 048
     Dates: start: 20030824
  11. PROMETHAZINE [Concomitant]
     Route: 048
     Dates: start: 20051220
  12. POTASSIUM CHLORIDE [Concomitant]
     Route: 048
     Dates: start: 20060112
  13. LOPERAMIDE [Concomitant]
     Route: 048
     Dates: start: 20040213
  14. AZITHROMYCIN [Concomitant]
     Route: 048
     Dates: start: 20030811
  15. CITALOPRAM HYDROBROMIDE [Concomitant]
     Route: 048
     Dates: start: 20000705

REACTIONS (3)
  - ENCEPHALOPATHY [None]
  - PROGRESSIVE MULTIFOCAL LEUKOENCEPHALOPATHY [None]
  - TRANSIENT ISCHAEMIC ATTACK [None]
